FAERS Safety Report 5586345-0 (Version None)
Quarter: 2008Q1

REPORT INFORMATION
  Report Type: 
  Country: None (occurrence: None)
  Receive Date: 20080110
  Receipt Date: 20080102
  Transmission Date: 20080703
  Serious: Yes (Other)
  Sender: FDA-Public Use
  Company Number: PHBS2008GB00586

PATIENT
  Age: 71 Year
  Sex: Female

DRUGS (12)
  1. ADRENALINE [Suspect]
     Indication: EYE IRRIGATION
     Dosage: 0.3 ML, UNK
     Route: 047
     Dates: start: 20070504, end: 20070504
  2. BETAMETHASONE [Suspect]
     Indication: POSTOPERATIVE CARE
     Dosage: UNK, UNK
     Route: 047
     Dates: start: 20070501, end: 20070501
  3. CHLORAMPHENICOL (NVO) [Suspect]
     Indication: CATARACT OPERATION
     Dosage: 1 DF, UNK
     Route: 047
     Dates: start: 20070501, end: 20070501
  4. POVIDONE IODINE [Suspect]
     Indication: CATARACT OPERATION
     Dosage: UNK, UNK
     Route: 047
     Dates: start: 20070501, end: 20070501
  5. CYCLOPENTOLATE (NVO) [Suspect]
     Indication: PREOPERATIVE CARE
     Dosage: 1 DF, UNK
     Route: 047
     Dates: start: 20070504, end: 20070504
  6. HYALURONIC ACID (NVO) [Suspect]
     Indication: CATARACT OPERATION
     Route: 047
     Dates: start: 20070501, end: 20070501
  7. LIDOCAINE [Suspect]
     Indication: ANAESTHESIA
     Dosage: 1 DF, UNK
     Route: 047
     Dates: start: 20070504, end: 20070504
  8. NEOMYCIN [Suspect]
     Indication: POSTOPERATIVE CARE
     Route: 047
     Dates: start: 20070501, end: 20070501
  9. OCUFEN [Suspect]
     Indication: PREOPERATIVE CARE
     Route: 047
     Dates: start: 20070501, end: 20070501
  10. PHENYLEPHRINE (NVO) [Suspect]
     Indication: CATARACT OPERATION
     Dosage: 1 DF, UNK
     Route: 047
     Dates: start: 20070501, end: 20070501
  11. VANCOMYCIN [Suspect]
     Indication: CATARACT OPERATION
     Dosage: 10 MG, UNK
     Route: 047
     Dates: start: 20070501, end: 20070501
  12. BSS [Suspect]
     Indication: EYE IRRIGATION
     Route: 031

REACTIONS (1)
  - TOXIC ANTERIOR SEGMENT SYNDROME [None]
